FAERS Safety Report 7719678-X (Version None)
Quarter: 2011Q3

REPORT INFORMATION
  Report Type: 
  Country: None (occurrence: None)
  Receive Date: 20110830
  Receipt Date: 20110826
  Transmission Date: 20111222
  Serious: Yes (Hospitalization)
  Sender: FDA-Public Use
  Company Number: JP-ABBOTT-11P-087-0849601-00

PATIENT
  Age: 62 Year
  Sex: Female

DRUGS (7)
  1. HUMIRA [Suspect]
  2. LAFUTIDINE [Concomitant]
     Indication: PRODUCT USED FOR UNKNOWN INDICATION
     Dosage: 20 MG DAILY DOSE
     Route: 048
  3. HUMIRA [Suspect]
     Dosage: (80MG)
     Dates: start: 20110819, end: 20110819
  4. ALFACALCIDOL [Concomitant]
     Indication: PRODUCT USED FOR UNKNOWN INDICATION
     Dosage: 1 MCG DAILY DOSE
     Route: 048
  5. CLOSTRIDIUM BUTYRICUM [Concomitant]
     Indication: PRODUCT USED FOR UNKNOWN INDICATION
     Dosage: 3 GM DAILY DOSE
     Route: 048
  6. HUMIRA [Suspect]
     Indication: CROHN'S DISEASE
     Dosage: (160MG)
     Route: 058
     Dates: start: 20110805, end: 20110805
  7. MESALAMINE [Concomitant]
     Indication: CROHN'S DISEASE
     Dosage: 3000 MG DAILY DOSE
     Route: 048

REACTIONS (1)
  - LARYNGEAL OEDEMA [None]
